FAERS Safety Report 21274372 (Version 1)
Quarter: 2022Q3

REPORT INFORMATION
  Report Type: Spontaneous
  Country: CN (occurrence: CN)
  Receive Date: 20220831
  Receipt Date: 20220831
  Transmission Date: 20221027
  Serious: Yes (Other)
  Sender: FDA-Public Use
  Company Number: CN-ViiV Healthcare Limited-CN2022APC122742

PATIENT

DRUGS (9)
  1. LAMIVUDINE [Suspect]
     Active Substance: LAMIVUDINE
     Indication: Antiviral treatment
     Dosage: 100 MG, QD
     Dates: start: 2001, end: 201107
  2. LAMIVUDINE [Suspect]
     Active Substance: LAMIVUDINE
     Indication: Hepatitis B
     Dosage: 100 MG, QD
     Dates: start: 201107, end: 201306
  3. ADEFOVIR DIPIVOXIL [Suspect]
     Active Substance: ADEFOVIR DIPIVOXIL
     Indication: Antiviral treatment
     Dosage: 10 MG, QD
     Dates: start: 201107, end: 201306
  4. ADEFOVIR DIPIVOXIL [Suspect]
     Active Substance: ADEFOVIR DIPIVOXIL
     Indication: Hepatitis B
     Dosage: 10 MG, QD
     Dates: start: 201404, end: 201606
  5. TENOFOVIR DISOPROXIL FUMARATE [Suspect]
     Active Substance: TENOFOVIR DISOPROXIL FUMARATE
     Indication: Antiviral treatment
     Dosage: 300 MG, 1D
     Dates: start: 201810
  6. TENOFOVIR DISOPROXIL FUMARATE [Suspect]
     Active Substance: TENOFOVIR DISOPROXIL FUMARATE
     Indication: Hepatitis B
     Dosage: 300 MG, 1D
     Dates: start: 201811, end: 202001
  7. ENTECAVIR [Suspect]
     Active Substance: ENTECAVIR
     Indication: Antiviral treatment
     Dosage: 0.5 MG, QD
     Dates: start: 201404, end: 201606
  8. ENTECAVIR [Suspect]
     Active Substance: ENTECAVIR
     Indication: Hepatitis B
     Dosage: 0.5 MG, QD
     Dates: start: 201607, end: 201711
  9. ENTECAVIR [Suspect]
     Active Substance: ENTECAVIR
     Dosage: 1 MG, 1D
     Dates: start: 201711, end: 201810

REACTIONS (17)
  - Fanconi syndrome [Recovered/Resolved]
  - Flank pain [Recovered/Resolved]
  - Abdominal distension [Recovered/Resolved]
  - Fatigue [Recovered/Resolved]
  - Poor quality sleep [Recovered/Resolved]
  - Pathogen resistance [Recovered/Resolved]
  - Arthralgia [Recovered/Resolved]
  - Musculoskeletal discomfort [Recovered/Resolved]
  - Limb discomfort [Recovered/Resolved]
  - Lumbar spinal stenosis [Recovered/Resolved]
  - Mobility decreased [Recovered/Resolved]
  - Osteoporosis [Recovered/Resolved]
  - Bone disorder [Recovered/Resolved]
  - Drug resistance [Unknown]
  - Blood phosphorus decreased [Recovered/Resolved]
  - Osteomalacia [Recovered/Resolved]
  - Hypophosphataemia [Recovered/Resolved]
